FAERS Safety Report 14406609 (Version 3)
Quarter: 2018Q2

REPORT INFORMATION
  Report Type: Spontaneous
  Country: DE (occurrence: DE)
  Receive Date: 20180118
  Receipt Date: 20180426
  Transmission Date: 20180711
  Serious: Yes (Disabling)
  Sender: FDA-Public Use
  Company Number: PHHY2018DE005003

PATIENT
  Age: 30 Year
  Sex: Female

DRUGS (1)
  1. MPA GYN [Suspect]
     Active Substance: MEDROXYPROGESTERONE ACETATE
     Indication: PRODUCT USED FOR UNKNOWN INDICATION
     Dosage: 2 DF, QD
     Route: 048

REACTIONS (9)
  - Hyperaesthesia [Unknown]
  - Nervousness [Unknown]
  - Anosmia [Unknown]
  - Hypoacusis [Unknown]
  - Decreased appetite [Unknown]
  - Ageusia [Unknown]
  - Auditory disorder [Unknown]
  - Paraesthesia [Unknown]
  - Acute stress disorder [Unknown]

NARRATIVE: CASE EVENT DATE: 20160101
